FAERS Safety Report 9269710 (Version 1)
Quarter: 2013Q2

REPORT INFORMATION
  Report Type: Spontaneous
  Country: US (occurrence: US)
  Receive Date: 20130503
  Receipt Date: 20130503
  Transmission Date: 20140414
  Serious: Yes (Hospitalization)
  Sender: FDA-Public Use
  Company Number: US-BRISTOL-MYERS SQUIBB COMPANY-18828590

PATIENT
  Age: 52 Year
  Sex: Female

DRUGS (8)
  1. REYATAZ [Suspect]
  2. TRUVADA [Suspect]
  3. RITONAVIR [Suspect]
  4. TYLENOL [Concomitant]
  5. CHOLECALCIFEROL [Concomitant]
  6. VITAMIN C [Concomitant]
  7. GABAPENTIN [Concomitant]
  8. COUMADIN [Concomitant]

REACTIONS (1)
  - Cerebrovascular accident [Unknown]
